FAERS Safety Report 22168938 (Version 1)
Quarter: 2023Q2

REPORT INFORMATION
  Report Type: Spontaneous
  Country: US (occurrence: US)
  Receive Date: 20230403
  Receipt Date: 20230403
  Transmission Date: 20230722
  Serious: No
  Sender: FDA-Public Use
  Company Number: USA--2023-US-000184

PATIENT
  Sex: 0

DRUGS (1)
  1. BIMATOPROST [Suspect]
     Active Substance: BIMATOPROST

REACTIONS (2)
  - Joint stiffness [Unknown]
  - Product packaging quantity issue [Unknown]
